FAERS Safety Report 11274117 (Version 1)
Quarter: 2015Q3

REPORT INFORMATION
  Report Type: Spontaneous
  Country: US (occurrence: US)
  Receive Date: 20150715
  Receipt Date: 20150715
  Transmission Date: 20151125
  Serious: Yes (Other)
  Sender: FDA-Public Use
  Company Number: US-GLAXOSMITHKLINE-US2015GSK100991

PATIENT
  Sex: Male

DRUGS (1)
  1. VOTRIENT [Suspect]
     Active Substance: PAZOPANIB HYDROCHLORIDE
     Indication: SARCOMA
     Dosage: 200 MG, UNK
     Dates: end: 201504

REACTIONS (3)
  - Pneumothorax [Unknown]
  - Dyspnoea [Unknown]
  - Lung operation [Unknown]

NARRATIVE: CASE EVENT DATE: 2015
